FAERS Safety Report 23397271 (Version 1)
Quarter: 2024Q1

REPORT INFORMATION
  Report Type: Spontaneous
  Country: US (occurrence: None)
  Receive Date: 20240112
  Receipt Date: 20240112
  Transmission Date: 20240410
  Serious: Yes (Death)
  Sender: FDA-Public Use
  Company Number: None

PATIENT
  Age: 72 Year
  Sex: Male

DRUGS (2)
  1. TACROLIMUS [Suspect]
     Active Substance: TACROLIMUS
     Indication: Liver transplant
     Dosage: 1 CAP BID ORAL
     Route: 048
     Dates: start: 20210602, end: 20240110
  2. EVEROLIMUS [Suspect]
     Active Substance: EVEROLIMUS
     Indication: Liver transplant
     Dosage: 1 TAB D ORAL
     Route: 048
     Dates: start: 20201022, end: 20240110

REACTIONS (1)
  - Death [None]

NARRATIVE: CASE EVENT DATE: 20240110
